FAERS Safety Report 14403791 (Version 1)
Quarter: 2018Q1

REPORT INFORMATION
  Report Type: Spontaneous
  Country: JP (occurrence: JP)
  Receive Date: 20180117
  Receipt Date: 20180117
  Transmission Date: 20180509
  Serious: Yes (Hospitalization, Other)
  Sender: FDA-Public Use
  Company Number: JP-PFIZER INC-2018012225

PATIENT
  Age: 64 Year
  Sex: Female
  Weight: 73 kg

DRUGS (17)
  1. UBRETID [Concomitant]
     Active Substance: DISTIGMINE BROMIDE
     Dosage: UNK
  2. SALAZOPYRIN 500MG [Suspect]
     Active Substance: SULFASALAZINE
     Indication: COLITIS ULCERATIVE
     Dosage: 2000 MG, 2X/DAY
     Route: 048
     Dates: start: 20170419, end: 20170426
  3. AMARYL [Concomitant]
     Active Substance: GLIMEPIRIDE
     Dosage: UNK
  4. EBRANTIL [Concomitant]
     Active Substance: URAPIDIL
     Dosage: UNK
  5. SEPAZON [Concomitant]
     Active Substance: CLOXAZOLAM
     Dosage: UNK
  6. MAGMITT [Concomitant]
     Active Substance: MAGNESIUM OXIDE
     Dosage: UNK
  7. TRICOR [Concomitant]
     Active Substance: FENOFIBRATE
     Dosage: UNK
  8. NESINA [Concomitant]
     Active Substance: ALOGLIPTIN BENZOATE
     Dosage: UNK
  9. METGLUCO [Concomitant]
     Active Substance: METFORMIN HYDROCHLORIDE
     Dosage: UNK
  10. PAROXETINE. [Concomitant]
     Active Substance: PAROXETINE
     Dosage: UNK
  11. LEVOFLOXACIN. [Concomitant]
     Active Substance: LEVOFLOXACIN
     Dosage: UNK
     Dates: start: 20170425
  12. PENTASA [Concomitant]
     Active Substance: MESALAMINE
     Dosage: UNK
     Dates: start: 20170324
  13. SENIRAN [Concomitant]
     Active Substance: BROMAZEPAM
     Dosage: UNK
  14. CONTOMIN [Concomitant]
     Active Substance: CHLORPROMAZINE
     Dosage: UNK
  15. LEVOMEPROMAZINE [Concomitant]
     Active Substance: LEVOMEPROMAZINE
     Dosage: UNK
  16. SILECE [Concomitant]
     Active Substance: FLUNITRAZEPAM
     Dosage: UNK
  17. TRAZODONE [Concomitant]
     Active Substance: TRAZODONE HYDROCHLORIDE
     Dosage: UNK

REACTIONS (17)
  - Urinary tract infection [Unknown]
  - Oropharyngeal pain [Unknown]
  - Lymphadenopathy [Unknown]
  - Drug reaction with eosinophilia and systemic symptoms [Unknown]
  - Depressed level of consciousness [Unknown]
  - Mouth haemorrhage [Unknown]
  - White blood cell count increased [Unknown]
  - Stevens-Johnson syndrome [Recovered/Resolved]
  - Pyrexia [Not Recovered/Not Resolved]
  - Rash [Unknown]
  - Rash vesicular [Unknown]
  - Lip swelling [Recovering/Resolving]
  - Lip erosion [Unknown]
  - Hepatic function abnormal [Recovered/Resolved]
  - Oedema [Unknown]
  - Erythema multiforme [Unknown]
  - Erythema [Recovering/Resolving]

NARRATIVE: CASE EVENT DATE: 20170425
